FAERS Safety Report 22884970 (Version 2)
Quarter: 2023Q4

REPORT INFORMATION
  Report Type: Spontaneous
  Country: TH (occurrence: None)
  Receive Date: 20230830
  Receipt Date: 20231124
  Transmission Date: 20240110
  Serious: Yes (Other)
  Sender: FDA-Public Use
  Company Number: 2023A192953

PATIENT
  Age: 60 Year
  Sex: Female

DRUGS (2)
  1. OSIMERTINIB [Suspect]
     Active Substance: OSIMERTINIB
     Indication: Lung adenocarcinoma stage IV
     Route: 048
  2. CAPMATINIB [Concomitant]
     Active Substance: CAPMATINIB
     Dates: start: 202212

REACTIONS (5)
  - Malignant neoplasm progression [Unknown]
  - Metastases to liver [Unknown]
  - Drug resistance [Unknown]
  - Acquired gene mutation [Unknown]
  - Abdominal pain [Unknown]
